FAERS Safety Report 16145258 (Version 1)
Quarter: 2019Q2

REPORT INFORMATION
  Report Type: Spontaneous
  Country: US (occurrence: US)
  Receive Date: 20190402
  Receipt Date: 20190402
  Transmission Date: 20190711
  Serious: No
  Sender: FDA-Public Use
  Company Number: US-AUROBINDO-AUR-APU-2018-015703

PATIENT

DRUGS (4)
  1. SERTRALINE [Suspect]
     Active Substance: SERTRALINE HYDROCHLORIDE
     Indication: DEPRESSION
     Dosage: 100 MILLIGRAM, HALF TABLET ONCE DAILY
     Route: 048
     Dates: start: 201702, end: 20180222
  2. ZOLOFT [Suspect]
     Active Substance: SERTRALINE HYDROCHLORIDE
     Indication: PANIC ATTACK
     Dosage: UNK
     Route: 065
  3. INVEGA [Concomitant]
     Active Substance: PALIPERIDONE
     Indication: AUTISM SPECTRUM DISORDER
     Dosage: 6 MILLIGRAM, DAILY
     Route: 048
     Dates: start: 201606
  4. ABILIFY [Concomitant]
     Active Substance: ARIPIPRAZOLE
     Indication: AUTISM SPECTRUM DISORDER
     Dosage: 22.5 MILLIGRAM, DAILY
     Route: 048
     Dates: start: 20180105

REACTIONS (6)
  - Product substitution issue [Unknown]
  - Psychotic behaviour [Unknown]
  - Insomnia [Recovered/Resolved]
  - Hypomania [Recovered/Resolved]
  - Wrong technique in product usage process [Unknown]
  - Aggression [Recovered/Resolved]

NARRATIVE: CASE EVENT DATE: 201712
